FAERS Safety Report 10663219 (Version 1)
Quarter: 2014Q4

REPORT INFORMATION
  Report Type: Spontaneous
  Country: US (occurrence: US)
  Receive Date: 20141218
  Receipt Date: 20141218
  Transmission Date: 20150529
  Serious: Yes (Disabling, Other)
  Sender: FDA-Public Use
  Company Number: US-BAXTER-2014BAX070437

PATIENT
  Age: 8 Year
  Sex: Female

DRUGS (9)
  1. CYCLOPHOSPHAMIDE FOR INJECTION, USP [Suspect]
     Active Substance: CYCLOPHOSPHAMIDE
     Indication: MALIGNANT HISTIOCYTOSIS
     Dosage: 1 G/M2, ON DAY 1, 29 AND 57
     Route: 042
  2. VINCRISTINE [Suspect]
     Active Substance: VINCRISTINE
     Indication: MALIGNANT HISTIOCYTOSIS
     Dosage: ON DAYS 1, 8, 15, 22 AND 28
     Route: 042
  3. 6-MERCAPTOPURINE [Suspect]
     Active Substance: MERCAPTOPURINE
     Indication: MALIGNANT HISTIOCYTOSIS
     Dosage: ON DAYS 1-14 AND 28-42
     Route: 065
  4. VINCRISTINE [Suspect]
     Active Substance: VINCRISTINE
     Dosage: ON DAYS 15, 22, 43 AND 50
     Route: 065
  5. PEGYLATED ASPARAGINASE [Suspect]
     Active Substance: PEGASPARGASE
     Dosage: 2,500 IU/M2 ON DAY 15 AND 43
     Route: 065
  6. DAUNORUBICINE [Suspect]
     Active Substance: DAUNORUBICIN
     Indication: MALIGNANT HISTIOCYTOSIS
     Dosage: ON DAYS 1, 8, 15 AND 22
     Route: 042
  7. PEGYLATED ASPARAGINASE [Suspect]
     Active Substance: PEGASPARGASE
     Indication: MALIGNANT HISTIOCYTOSIS
     Dosage: 2,500 IU/M2, ON DAY 4
     Route: 065
  8. CYTARABINE. [Suspect]
     Active Substance: CYTARABINE
     Indication: MALIGNANT HISTIOCYTOSIS
     Dosage: ON DAYS 1-4, 8-11, 29-32 AND 36-39
     Route: 065
  9. PREDNISONE. [Suspect]
     Active Substance: PREDNISONE
     Indication: MALIGNANT HISTIOCYTOSIS
     Dosage: ON DAYS 1-28
     Route: 048

REACTIONS (3)
  - Pancreatitis necrotising [Not Recovered/Not Resolved]
  - Cerebral haemorrhage [Recovered/Resolved]
  - Cerebellar haemorrhage [Recovered/Resolved]
